FAERS Safety Report 4897038-7 (Version None)
Quarter: 2005Q4

REPORT INFORMATION
  Report Type: 
  Country: None (occurrence: None)
  Receive Date: 20051228
  Receipt Date: 20041105
  Transmission Date: 20060501
  Serious: Yes (Hospitalization)
  Sender: FDA-Public Use
  Company Number: US_030493858

PATIENT
  Age: 65 Year
  Sex: Male
  Weight: 118 kg

DRUGS (4)
  1. HUMALOG [Suspect]
     Dates: start: 20021101
  2. HUMULIN N [Suspect]
     Indication: DIABETES MELLITUS
     Dates: start: 20030201
  3. PIOGLITAZONE HYDROCHLORIDE [Concomitant]
  4. LANTUS [Concomitant]

REACTIONS (2)
  - BLOOD GLUCOSE INCREASED [None]
  - CARDIAC FAILURE CONGESTIVE [None]
